FAERS Safety Report 5952030-6 (Version None)
Quarter: 2008Q4

REPORT INFORMATION
  Report Type: 
  Country: None (occurrence: None)
  Receive Date: 20081113
  Receipt Date: 20071213
  Transmission Date: 20090506
  Serious: No
  Sender: FDA-Public Use
  Company Number: A0698813A

PATIENT
  Age: 68 Year
  Sex: Male

DRUGS (5)
  1. COREG [Suspect]
     Route: 048
     Dates: start: 20060101, end: 20070901
  2. COREG CR [Suspect]
     Indication: HYPERTENSION
     Dosage: 20MG PER DAY
     Route: 048
     Dates: start: 20070901
  3. ALTACE [Concomitant]
  4. FOLIC ACID [Concomitant]
  5. HYDROCHLOROTHIAZIDE [Concomitant]

REACTIONS (5)
  - COLD SWEAT [None]
  - DRY MOUTH [None]
  - DYSPHAGIA [None]
  - FEELING HOT [None]
  - PYREXIA [None]
